FAERS Safety Report 21696705 (Version 2)
Quarter: 2022Q4

REPORT INFORMATION
  Report Type: Spontaneous
  Country: FR (occurrence: FR)
  Receive Date: 20221207
  Receipt Date: 20221223
  Transmission Date: 20230113
  Serious: Yes (Disabling, Other)
  Sender: FDA-Public Use
  Company Number: FR-JNJFOC-20221208272

PATIENT
  Age: 77 Year
  Sex: Male
  Weight: 114 kg

DRUGS (7)
  1. SIMPONI [Suspect]
     Active Substance: GOLIMUMAB
     Indication: Ankylosing spondylitis
     Route: 058
     Dates: start: 201710, end: 20220706
  2. PERINDOPRIL ERBUMINE [Concomitant]
     Active Substance: PERINDOPRIL ERBUMINE
     Dosage: 1 TABLET IN THE MORNING
  3. BISOPROLOL [Concomitant]
     Active Substance: BISOPROLOL
     Dosage: 1 TABLET IN THE MORNING
  4. SOTALOL [Concomitant]
     Active Substance: SOTALOL
     Dosage: 1 IN THE MORNING, 1 IN THE EVENING
  5. XARELTO [Concomitant]
     Active Substance: RIVAROXABAN
     Dosage: 1 TABLET IN THE MORNING
  6. SIMVASTATIN [Concomitant]
     Active Substance: SIMVASTATIN
     Dosage: 10: 1 TABLET IN THE EVENING
  7. ESOMEPRAZOLE [Concomitant]
     Active Substance: ESOMEPRAZOLE
     Dosage: 1 CAPSULE IN THE EVENING

REACTIONS (1)
  - Prostate cancer [Not Recovered/Not Resolved]

NARRATIVE: CASE EVENT DATE: 20220303
